FAERS Safety Report 6396038-8 (Version None)
Quarter: 2009Q4

REPORT INFORMATION
  Report Type: 
  Country: None (occurrence: None)
  Receive Date: 20091009
  Receipt Date: 20090919
  Transmission Date: 20100525
  Serious: Yes (Other)
  Sender: FDA-Public Use
  Company Number: PHHY2009BR40770

PATIENT
  Sex: Female

DRUGS (12)
  1. DIOVAN HCT [Suspect]
     Dosage: 160/25 MG
  2. DIOVAN [Suspect]
     Dosage: 160 MG
  3. AMITRIPTYLINE [Concomitant]
  4. OMEPRAZOLE [Concomitant]
  5. PROPRANOLOL HYDROCHLORIDE [Concomitant]
  6. PREDNISONE [Concomitant]
  7. RIVOTRIL [Concomitant]
  8. BETAHISTINE HYDROCHLORIDE [Concomitant]
  9. DRAMIN [Concomitant]
  10. TRAMADOL HYDROCHLORIDE [Concomitant]
  11. TYLEX [Concomitant]
  12. AMIODARONE [Concomitant]

REACTIONS (1)
  - CARDIAC DISORDER [None]
